FAERS Safety Report 24547102 (Version 2)
Quarter: 2024Q4

REPORT INFORMATION
  Report Type: Report from Study
  Country: US (occurrence: US)
  Receive Date: 20241025
  Receipt Date: 20241112
  Transmission Date: 20250114
  Serious: No
  Sender: BIOGEN
  Company Number: US-BIOGEN-2024BI01287162

PATIENT
  Age: 25 Year
  Sex: Female

DRUGS (1)
  1. ZURZUVAE [Suspect]
     Active Substance: ZURANOLONE
     Indication: Product used for unknown indication
     Route: 050

REACTIONS (6)
  - Mobility decreased [Unknown]
  - Accident [Recovered/Resolved]
  - Wrong technique in product usage process [Unknown]
  - Somnolence [Unknown]
  - Dizziness [Unknown]
  - Abdominal pain upper [Unknown]
